FAERS Safety Report 9467933 (Version 2)
Quarter: 2013Q3

REPORT INFORMATION
  Report Type: Spontaneous
  Country: JP (occurrence: JP)
  Receive Date: 20130821
  Receipt Date: 20130903
  Transmission Date: 20140515
  Serious: Yes (Death, Other)
  Sender: FDA-Public Use
  Company Number: JP-PFIZER INC-2013241511

PATIENT
  Sex: 0

DRUGS (2)
  1. LYRICA [Suspect]
     Indication: NEURALGIA
     Dosage: UNK
     Route: 048
  2. 5-FU [Suspect]
     Dosage: UNK

REACTIONS (2)
  - Interstitial lung disease [Fatal]
  - General physical health deterioration [Fatal]
